FAERS Safety Report 19988172 (Version 1)
Quarter: 2021Q4

REPORT INFORMATION
  Report Type: Spontaneous
  Country: GB (occurrence: GB)
  Receive Date: 20211022
  Receipt Date: 20211022
  Transmission Date: 20220303
  Serious: Yes (Disabling, Other)
  Sender: FDA-Public Use
  Company Number: 2021A527490

PATIENT
  Sex: Male
  Weight: 63.5 kg

DRUGS (16)
  1. OMEPRAZOLE [Suspect]
     Active Substance: OMEPRAZOLE
     Indication: Gastrooesophageal reflux disease
     Route: 065
  2. OMEPRAZOLE [Suspect]
     Active Substance: OMEPRAZOLE
     Indication: Hiatus hernia
     Route: 065
  3. OMEPRAZOLE [Suspect]
     Active Substance: OMEPRAZOLE
     Indication: Gastrooesophageal reflux disease
     Route: 065
  4. OMEPRAZOLE [Suspect]
     Active Substance: OMEPRAZOLE
     Indication: Hiatus hernia
     Route: 065
  5. OMEPRAZOLE [Suspect]
     Active Substance: OMEPRAZOLE
     Indication: Gastrooesophageal reflux disease
     Route: 048
     Dates: start: 1992, end: 200202
  6. OMEPRAZOLE [Suspect]
     Active Substance: OMEPRAZOLE
     Indication: Hiatus hernia
     Route: 048
     Dates: start: 1992, end: 200202
  7. OMEPRAZOLE [Suspect]
     Active Substance: OMEPRAZOLE
     Indication: Gastrooesophageal reflux disease
     Route: 048
     Dates: start: 2002, end: 2017
  8. OMEPRAZOLE [Suspect]
     Active Substance: OMEPRAZOLE
     Indication: Hiatus hernia
     Route: 048
     Dates: start: 2002, end: 2017
  9. OMEPRAZOLE [Suspect]
     Active Substance: OMEPRAZOLE
     Indication: Gastrooesophageal reflux disease
     Route: 048
     Dates: start: 2019
  10. OMEPRAZOLE [Suspect]
     Active Substance: OMEPRAZOLE
     Indication: Hiatus hernia
     Route: 048
     Dates: start: 2019
  11. SIMVASTATIN [Concomitant]
     Active Substance: SIMVASTATIN
     Indication: Cardiovascular event prophylaxis
     Dosage: SIMVASTATIN 40 MG DAILY
     Route: 065
     Dates: start: 2004
  12. ASPIRIN [Concomitant]
     Active Substance: ASPIRIN
     Indication: Cardiovascular event prophylaxis
     Dosage: ASPIRIN 75 MG DAILY
     Route: 065
     Dates: start: 2001
  13. FOLIC ACID [Concomitant]
     Active Substance: FOLIC ACID
     Indication: Cardiovascular event prophylaxis
     Dosage: FOLIC ACID 800 MCG DAILY800UG/INHAL DAILY
     Dates: start: 2004
  14. RISEDRONATE SODIUM [Concomitant]
     Active Substance: RISEDRONATE SODIUM
     Indication: Osteoporosis
     Dosage: RISEDRONIC ACID 35 MG WEEKLY
     Dates: start: 201802
  15. ROPINIROLE [Concomitant]
     Active Substance: ROPINIROLE
     Indication: Periodic limb movement disorder
     Dosage: ROPINIROLE 2 MG TDS
     Dates: start: 2002
  16. ADCAL [Concomitant]
     Indication: Osteoporosis
     Dosage: ADCAL DAILY
     Dates: start: 201802

REACTIONS (8)
  - Vitamin B12 deficiency [Unknown]
  - Osteoporosis [Not Recovered/Not Resolved]
  - Spinal compression fracture [Unknown]
  - Neuropathy peripheral [Not Recovered/Not Resolved]
  - Restless legs syndrome [Not Recovered/Not Resolved]
  - Malabsorption [Not Recovered/Not Resolved]
  - Fall [Unknown]
  - Ulna fracture [Unknown]

NARRATIVE: CASE EVENT DATE: 20020101
